FAERS Safety Report 7067820-9 (Version None)
Quarter: 2010Q4

REPORT INFORMATION
  Report Type: 
  Country: None (occurrence: None)
  Receive Date: 20101004
  Receipt Date: 20100915
  Transmission Date: 20110411
  Serious: Yes (Other)
  Sender: FDA-Public Use
  Company Number: GAM-262-10-US

PATIENT

DRUGS (1)
  1. OCTAGAM [Suspect]
     Indication: MULTIPLE SCLEROSIS
     Dosage: 60 G
     Dates: start: 20100819, end: 20100819

REACTIONS (7)
  - CHEST PAIN [None]
  - IMPLANT SITE INDURATION [None]
  - IMPLANT SITE INFECTION [None]
  - IMPLANT SITE INFLAMMATION [None]
  - IMPLANT SITE PAIN [None]
  - JUGULAR VEIN THROMBOSIS [None]
  - PYREXIA [None]
